FAERS Safety Report 17846542 (Version 2)
Quarter: 2020Q2

REPORT INFORMATION
  Report Type: Spontaneous
  Country: GB (occurrence: GB)
  Receive Date: 20200601
  Receipt Date: 20200609
  Transmission Date: 20200714
  Serious: Yes (Death, Life-Threatening, Other)
  Sender: FDA-Public Use
  Company Number: GB-MYLANLABS-2020M1052300

PATIENT
  Age: 89 Year
  Sex: Female
  Weight: 61 kg

DRUGS (9)
  1. CO-AMOXICLAV                       /00756801/ [Concomitant]
     Active Substance: AMOXICILLIN\CLAVULANIC ACID
     Indication: PNEUMONIA
     Dosage: 3.6 GRAM, QD
     Route: 042
     Dates: start: 20200309, end: 20200313
  2. BUMETANIDE. [Concomitant]
     Active Substance: BUMETANIDE
     Dosage: UNK
  3. SODIUM CHLORIDE. [Concomitant]
     Active Substance: SODIUM CHLORIDE
     Indication: HYPOTENSION
     Dosage: 1000 MILLILITRE OVER 12 HOURS
     Route: 042
  4. DOXYCYCLINE. [Concomitant]
     Active Substance: DOXYCYCLINE
     Indication: PNEUMONIA
     Dosage: 200 MILLIGRAM, QD
     Route: 048
     Dates: start: 20200309, end: 20200312
  5. WARFARIN [Suspect]
     Active Substance: WARFARIN
     Indication: ATRIAL FIBRILLATION
     Dosage: WARFARIN 4MG SUNDAY, 3MG EVERY OTHER DAY
     Route: 048
     Dates: start: 20120307, end: 20200311
  6. COLECALCIFEROL [Concomitant]
     Active Substance: CHOLECALCIFEROL
     Indication: VITAMIN SUPPLEMENTATION
     Dosage: 800 UNITS ONCE EACH MORNING
     Route: 048
     Dates: start: 20200309, end: 20200322
  7. MEROPENEM. [Concomitant]
     Active Substance: MEROPENEM
     Indication: PNEUMONIA
     Dosage: 1500 MILLIGRAM, QD
     Route: 042
  8. SPIRONOLACTONE. [Concomitant]
     Active Substance: SPIRONOLACTONE
     Dosage: UNK
  9. PARACETAMOL [Concomitant]
     Active Substance: ACETAMINOPHEN
     Indication: ANALGESIC THERAPY
     Dosage: 4 GRAM, QD
     Route: 048
     Dates: start: 20200309, end: 20200322

REACTIONS (9)
  - Loss of consciousness [Unknown]
  - Pulmonary sepsis [Unknown]
  - End stage renal disease [Not Recovered/Not Resolved]
  - Respiratory failure [Unknown]
  - Right ventricular failure [Not Recovered/Not Resolved]
  - Pyrexia [Unknown]
  - Pneumonia [Fatal]
  - International normalised ratio increased [Recovered/Resolved]
  - Suspected COVID-19 [Unknown]

NARRATIVE: CASE EVENT DATE: 20200309
